FAERS Safety Report 4906363-2 (Version None)
Quarter: 2006Q1

REPORT INFORMATION
  Report Type: 
  Country: None (occurrence: None)
  Receive Date: 20060207
  Receipt Date: 20060120
  Transmission Date: 20060701
  Serious: Yes (Death, Disabling)
  Sender: FDA-Public Use
  Company Number: EWC051147192

PATIENT
  Age: 52 Year
  Sex: Male

DRUGS (3)
  1. GEMZAR [Suspect]
     Indication: PANCREATIC CARCINOMA
     Dosage: 1850 MG, OTHER,
     Dates: start: 20051011
  2. HALDOL [Concomitant]
  3. KLEXANE (HEPARIN-FRACTION, SODIUM SALT) [Concomitant]

REACTIONS (11)
  - BACK PAIN [None]
  - DEHYDRATION [None]
  - HEPATIC FUNCTION ABNORMAL [None]
  - MALIGNANT NEOPLASM PROGRESSION [None]
  - METASTASES TO LIVER [None]
  - METASTASIS [None]
  - MUSCLE SPASMS [None]
  - NAUSEA [None]
  - PAIN [None]
  - PANCREATIC CARCINOMA [None]
  - SPINAL COLUMN STENOSIS [None]
